FAERS Safety Report 10361871 (Version 1)
Quarter: 2014Q3

REPORT INFORMATION
  Report Type: Spontaneous
  Country: US (occurrence: US)
  Receive Date: 20140805
  Receipt Date: 20140805
  Transmission Date: 20150326
  Serious: No
  Sender: FDA-Public Use
  Company Number: US-009507513-1407USA009161

PATIENT
  Age: 29 Year
  Sex: Female

DRUGS (1)
  1. IMPLANON [Suspect]
     Active Substance: ETONOGESTREL
     Dosage: EVERY 3 YEARS, 1 ROD
     Route: 059

REACTIONS (5)
  - Nausea [Unknown]
  - Hypoaesthesia [Unknown]
  - Migraine [Unknown]
  - Vision blurred [Unknown]
  - Tremor [Unknown]
